FAERS Safety Report 24291884 (Version 1)
Quarter: 2024Q3

REPORT INFORMATION
  Report Type: Spontaneous
  Country: CA (occurrence: CA)
  Receive Date: 20240906
  Receipt Date: 20240906
  Transmission Date: 20241016
  Serious: Yes (Other)
  Sender: SEPTODONT
  Company Number: None

PATIENT
  Age: 71 Year
  Sex: Female

DRUGS (1)
  1. EPINEPHRINE\LIDOCAINE [Suspect]
     Active Substance: EPINEPHRINE\LIDOCAINE
     Indication: Dental operation
     Route: 065

REACTIONS (6)
  - Anxiety [Unknown]
  - Chest pain [Unknown]
  - Chills [Unknown]
  - Dizziness [Unknown]
  - Feeling cold [Unknown]
  - Tremor [Unknown]
